FAERS Safety Report 16201967 (Version 6)
Quarter: 2019Q3

REPORT INFORMATION
  Report Type: Report from Study
  Country: CN (occurrence: CN)
  Receive Date: 20190416
  Receipt Date: 20190828
  Transmission Date: 20191004
  Serious: Yes (Hospitalization, Other)
  Sender: FDA-Public Use
  Company Number: CN-AMGEN-CHNCT2019045441

PATIENT
  Age: 24 Year
  Sex: Male
  Weight: 74.5 kg

DRUGS (13)
  1. WATER-SOLUBLE VITAMIN [Concomitant]
     Active Substance: VITAMINS
     Dosage: 1 UNK
     Dates: start: 20190318, end: 20190318
  2. SODIUM BICARBONATE. [Concomitant]
     Active Substance: SODIUM BICARBONATE
     Dosage: 1 GRAM AND 125 MILLILITER
     Dates: start: 20190310, end: 20190403
  3. METHOTREXATE. [Concomitant]
     Active Substance: METHOTREXATE
     Dosage: 10 MILLIGRAM
     Route: 037
     Dates: start: 20190313, end: 20190313
  4. B1 VITAMIN [Concomitant]
     Dosage: 10 MILLIGRAM
     Route: 048
     Dates: start: 20190314, end: 20190403
  5. BLINATUMOMAB [Suspect]
     Active Substance: BLINATUMOMAB
     Indication: B PRECURSOR TYPE ACUTE LEUKAEMIA
     Dosage: 9 MICROGRAM, QD
     Route: 042
     Dates: start: 20190318, end: 20190318
  6. DEXAMETHASONE. [Concomitant]
     Active Substance: DEXAMETHASONE
     Indication: VOMITING
     Dosage: 20 MILLIGRAM
     Dates: start: 20190318, end: 20190318
  7. POTASSIUM CHLORIDE. [Concomitant]
     Active Substance: POTASSIUM CHLORIDE
     Dosage: 10 MILLILITER
     Route: 042
     Dates: start: 20190318, end: 20190401
  8. OMEPRAZOLE SODIUM [Concomitant]
     Active Substance: OMEPRAZOLE SODIUM
     Dosage: 40 MILLIGRAM
     Route: 042
     Dates: start: 20190314, end: 20190325
  9. TROPISETRON HYDROCHLORIDE [Concomitant]
     Active Substance: TROPISETRON HYDROCHLORIDE
     Dosage: 5 MILLIGRAM
     Route: 042
     Dates: start: 20190318, end: 20190320
  10. DEXAMETHASONE SODIUM PHOSPHATE. [Concomitant]
     Active Substance: DEXAMETHASONE SODIUM PHOSPHATE
     Dosage: 4-10 MILLIGRAM
     Dates: start: 20190313, end: 20190403
  11. BENZBROMARONE [Concomitant]
     Active Substance: BENZBROMARONE
     Dosage: 50 MILLIGRAM
     Route: 048
     Dates: start: 20190311, end: 20190401
  12. LIDOCAINE HYDROCHLORIDE. [Concomitant]
     Active Substance: LIDOCAINE HYDROCHLORIDE
     Dosage: 0.2 GRAM
     Route: 058
     Dates: start: 20190313, end: 20190403
  13. TRIMETAZIDINE DIHYDROCHLORIDE [Concomitant]
     Active Substance: TRIMETAZIDINE DIHYDROCHLORIDE
     Dosage: 35 MILLIGRAM
     Route: 048
     Dates: start: 20190314, end: 20190403

REACTIONS (1)
  - Liver injury [Not Recovered/Not Resolved]

NARRATIVE: CASE EVENT DATE: 20190319
